FAERS Safety Report 13911085 (Version 3)
Quarter: 2017Q4

REPORT INFORMATION
  Report Type: Spontaneous
  Country: IT (occurrence: IT)
  Receive Date: 20170828
  Receipt Date: 20171017
  Transmission Date: 20180320
  Serious: Yes (Hospitalization, Other)
  Sender: FDA-Public Use
  Company Number: IT-009507513-1708ITA011221

PATIENT
  Age: 70 Year
  Sex: Female
  Weight: 58 kg

DRUGS (7)
  1. MAXALT [Suspect]
     Active Substance: RIZATRIPTAN BENZOATE
     Indication: MIGRAINE
     Dosage: 10 MG, PRN (AS NEEDED USE)
     Route: 048
     Dates: start: 2015, end: 20151121
  2. VENLAFAXINE HYDROCHLORIDE. [Interacting]
     Active Substance: VENLAFAXINE HYDROCHLORIDE
     Indication: MAJOR DEPRESSION
     Dosage: 150 MG, QAM (150 MG IN THE MORNING)
     Route: 048
     Dates: start: 20151121, end: 20151123
  3. DIAZEPAM. [Concomitant]
     Active Substance: DIAZEPAM
     Indication: ANXIETY DISORDER
     Dosage: 5 MG, TID (RECOMMENDED DOSE), TOTAL DAILY DOSE 15 MG
     Route: 048
     Dates: start: 201511
  4. DIAZEPAM. [Concomitant]
     Active Substance: DIAZEPAM
     Indication: AGITATION
     Dosage: 5 MG, BID
     Route: 048
     Dates: start: 201511
  5. DIAZEPAM. [Concomitant]
     Active Substance: DIAZEPAM
     Indication: MIGRAINE
  6. VENLAFAXINE HYDROCHLORIDE. [Interacting]
     Active Substance: VENLAFAXINE HYDROCHLORIDE
     Indication: MIGRAINE
     Dosage: 75 MG, QPM (75 MG IN THE AFTERNOON)
     Route: 048
     Dates: start: 20151121, end: 20151123
  7. ACETAMINOPHEN AND CODEINE [Interacting]
     Active Substance: ACETAMINOPHEN\CODEINE PHOSPHATE
     Indication: MIGRAINE
     Dosage: ACETAMINOPHEN 500 MG/CODEINE 30 MG
     Route: 048
     Dates: start: 20151121, end: 20151123

REACTIONS (3)
  - Serotonin syndrome [Recovered/Resolved]
  - Prescription drug used without a prescription [Unknown]
  - Drug interaction [Recovering/Resolving]

NARRATIVE: CASE EVENT DATE: 2015
